FAERS Safety Report 18010057 (Version 1)
Quarter: 2020Q3

REPORT INFORMATION
  Report Type: Spontaneous
  Country: MT (occurrence: MT)
  Receive Date: 20200710
  Receipt Date: 20200710
  Transmission Date: 20201103
  Serious: Yes (Death, Life-Threatening, Hospitalization, Other)
  Sender: FDA-Public Use
  Company Number: MT-GLAXOSMITHKLINE-MT2020GSK108817

PATIENT
  Age: 70 Year
  Sex: Male

DRUGS (4)
  1. CARVEDILOL. [Suspect]
     Active Substance: CARVEDILOL
     Indication: VENTRICULAR TACHYCARDIA
     Dosage: 3.125 MG, BID
  2. CARVEDILOL. [Suspect]
     Active Substance: CARVEDILOL
     Indication: SUPRAVENTRICULAR TACHYCARDIA
     Dosage: 12.5 MG, BID
  3. DIGOXIN. [Suspect]
     Active Substance: DIGOXIN
     Indication: SUPRAVENTRICULAR TACHYCARDIA
     Dosage: 62.5 UG
  4. DIGOXIN. [Suspect]
     Active Substance: DIGOXIN
     Indication: VENTRICULAR TACHYCARDIA

REACTIONS (19)
  - Cardioactive drug level increased [Recovered/Resolved]
  - Renal impairment [Unknown]
  - Heart rate decreased [Recovering/Resolving]
  - Toxicity to various agents [Recovered/Resolved]
  - Cardiac arrest [Fatal]
  - Nausea [Recovered/Resolved]
  - Atrial fibrillation [Unknown]
  - Vomiting [Recovered/Resolved]
  - Dizziness [Recovered/Resolved]
  - Urine output decreased [Recovered/Resolved]
  - Electrocardiogram QRS complex shortened [Unknown]
  - Bradycardia [Recovered/Resolved]
  - Bradyarrhythmia [Recovered/Resolved]
  - Ventricular tachycardia [Recovering/Resolving]
  - Atrioventricular block complete [Recovered/Resolved]
  - Nodal rhythm [Unknown]
  - Anuria [Unknown]
  - Dialysis related complication [Unknown]
  - Abdominal pain upper [Recovered/Resolved]
